FAERS Safety Report 5141476-4 (Version None)
Quarter: 2006Q4

REPORT INFORMATION
  Report Type: 
  Country: None (occurrence: None)
  Receive Date: 20061101
  Receipt Date: 20061023
  Transmission Date: 20070319
  Serious: Yes (Hospitalization, Other)
  Sender: FDA-Public Use
  Company Number: US-JNJFOC-20060703190

PATIENT
  Sex: Female
  Weight: 78.47 kg

DRUGS (8)
  1. REMICADE [Suspect]
     Route: 042
  2. REMICADE [Suspect]
     Route: 042
  3. REMICADE [Suspect]
     Route: 042
  4. REMICADE [Suspect]
     Indication: PSORIATIC ARTHROPATHY
     Route: 042
  5. PREDNISONE TAB [Concomitant]
     Indication: STEROID THERAPY
  6. BACTRIM [Concomitant]
     Indication: ANTIBIOTIC PROPHYLAXIS
  7. DARVOCET [Concomitant]
     Indication: PAIN
  8. VICODIN [Concomitant]
     Indication: PAIN

REACTIONS (6)
  - BACK PAIN [None]
  - BLOOD PRESSURE INCREASED [None]
  - CONVULSION [None]
  - INFUSION RELATED REACTION [None]
  - PRURITUS [None]
  - VENTRICULAR EXTRASYSTOLES [None]
